FAERS Safety Report 24457170 (Version 1)
Quarter: 2024Q4

REPORT INFORMATION
  Report Type: Spontaneous
  Country: US (occurrence: US)
  Receive Date: 20241018
  Receipt Date: 20241018
  Transmission Date: 20250115
  Serious: No
  Sender: APOTEX
  Company Number: US-APOTEX-2024AP011793

PATIENT
  Age: 56 Year
  Sex: Male

DRUGS (25)
  1. OXCARBAZEPINE [Interacting]
     Active Substance: OXCARBAZEPINE
     Indication: Mood altered
     Dosage: 1500 MILLIGRAM, QD
     Route: 065
  2. OXCARBAZEPINE [Interacting]
     Active Substance: OXCARBAZEPINE
     Dosage: 1200 MILLIGRAM, QD
     Route: 065
     Dates: start: 20230601
  3. OXCARBAZEPINE [Interacting]
     Active Substance: OXCARBAZEPINE
     Dosage: 1200 MILLIGRAM, QD
     Route: 065
     Dates: start: 20231117
  4. OXCARBAZEPINE [Interacting]
     Active Substance: OXCARBAZEPINE
     Dosage: 1200 MILLIGRAM, QD
     Route: 065
     Dates: start: 20231126
  5. OXCARBAZEPINE [Interacting]
     Active Substance: OXCARBAZEPINE
     Dosage: 1200 MILLIGRAM, QD
     Route: 065
     Dates: start: 20231208
  6. OXCARBAZEPINE [Interacting]
     Active Substance: OXCARBAZEPINE
     Dosage: 900 MILLIGRAM, QD
     Route: 065
     Dates: start: 20240102
  7. GLYCOPYRROLATE [Suspect]
     Active Substance: GLYCOPYRROLATE
     Indication: Product used for unknown indication
     Dosage: 3 MILLIGRAM, QD
     Route: 065
  8. CLOZAPINE [Interacting]
     Active Substance: CLOZAPINE
     Indication: Antipsychotic therapy
     Dosage: 325 MILLIGRAM, QD
     Route: 065
     Dates: start: 20230601
  9. CLOZAPINE [Interacting]
     Active Substance: CLOZAPINE
     Dosage: 550 MILLIGRAM, QD
     Route: 065
     Dates: start: 20231117
  10. CLOZAPINE [Interacting]
     Active Substance: CLOZAPINE
     Dosage: 500 MILLIGRAM, QD
     Route: 065
     Dates: start: 20231126
  11. CLOZAPINE [Interacting]
     Active Substance: CLOZAPINE
     Dosage: 550 MILLIGRAM, QD
     Route: 065
     Dates: start: 20231208
  12. CLOZAPINE [Interacting]
     Active Substance: CLOZAPINE
     Dosage: 550 MILLIGRAM, QD
     Route: 065
     Dates: start: 20240102
  13. BENZTROPINE [Suspect]
     Active Substance: BENZTROPINE
     Indication: Product used for unknown indication
     Dosage: 4 MILLIGRAM, QD
     Route: 065
  14. QUETIAPINE [Concomitant]
     Active Substance: QUETIAPINE
     Indication: Antipsychotic therapy
     Dosage: 400 MILLIGRAM
     Route: 065
  15. QUETIAPINE [Concomitant]
     Active Substance: QUETIAPINE
     Dosage: 650 MILLIGRAM
     Route: 065
     Dates: start: 202302
  16. FLUVOXAMINE [Concomitant]
     Active Substance: FLUVOXAMINE
     Indication: Antidepressant therapy
     Dosage: 200 MILLIGRAM, QD
     Route: 065
  17. PALIPERIDONE [Concomitant]
     Active Substance: PALIPERIDONE
     Indication: Antipsychotic therapy
     Dosage: 117 MILLIGRAM (EVERY 28 DAYS)
     Route: 030
  18. PALIPERIDONE [Concomitant]
     Active Substance: PALIPERIDONE
     Dosage: 234 MILLIGRAM (EVERY 28 DAYS)
     Route: 030
  19. PALIPERIDONE [Concomitant]
     Active Substance: PALIPERIDONE
     Dosage: 156 MILLIGRAM (EVERY 28 DAYS)
     Route: 030
  20. VENLAFAXINE [Concomitant]
     Active Substance: VENLAFAXINE HYDROCHLORIDE
     Indication: Depression
     Dosage: 37.5 MILLIGRAM, QD
     Route: 065
     Dates: start: 202211
  21. VENLAFAXINE [Concomitant]
     Active Substance: VENLAFAXINE HYDROCHLORIDE
     Indication: Anxiety
  22. LORAZEPAM [Concomitant]
     Active Substance: LORAZEPAM
     Indication: Antipsychotic therapy
     Dosage: 2 MILLIGRAM, QD
     Route: 065
  23. HYDROXYZINE [Concomitant]
     Active Substance: HYDROXYZINE HYDROCHLORIDE
     Indication: Product used for unknown indication
     Dosage: UNK, PRN
     Route: 065
  24. SENNA [Concomitant]
     Active Substance: SENNA LEAF\SENNOSIDES\SENNOSIDES A AND B
     Indication: Product used for unknown indication
     Dosage: UNK, PRN
     Route: 065
  25. MAGNESIUM HYDROXIDE [Concomitant]
     Active Substance: MAGNESIUM HYDROXIDE
     Indication: Product used for unknown indication
     Dosage: UNK, PRN
     Route: 065

REACTIONS (4)
  - Drug interaction [Unknown]
  - Antipsychotic drug level below therapeutic [Unknown]
  - Condition aggravated [Unknown]
  - Constipation [Unknown]

NARRATIVE: CASE EVENT DATE: 20230101
